FAERS Safety Report 20566479 (Version 2)
Quarter: 2022Q2

REPORT INFORMATION
  Report Type: Report from Study
  Country: FR (occurrence: FR)
  Receive Date: 20220308
  Receipt Date: 20220613
  Transmission Date: 20220721
  Serious: Yes (Hospitalization)
  Sender: FDA-Public Use
  Company Number: FR-SERVIER-S22001534

PATIENT

DRUGS (8)
  1. PEGASPARGASE [Suspect]
     Active Substance: PEGASPARGASE
     Indication: Acute lymphocytic leukaemia
     Dosage: 2100 IU, D6
     Route: 042
     Dates: start: 20220110, end: 20220110
  2. CYTARABINE [Suspect]
     Active Substance: CYTARABINE
     Indication: Acute lymphocytic leukaemia
     Dosage: 3300 MG, D1 TO D2
     Route: 042
     Dates: start: 20220105, end: 20220106
  3. CYTARABINE [Suspect]
     Active Substance: CYTARABINE
     Dosage: 30 MG, ON D5
     Route: 037
     Dates: start: 20220109, end: 20220109
  4. DEXAMETHASONE [Suspect]
     Active Substance: DEXAMETHASONE
     Indication: Acute lymphocytic leukaemia
     Dosage: 17 MG, D1 TO D6
     Route: 048
     Dates: start: 20220105, end: 20220110
  5. MITOXANTRONE [Suspect]
     Active Substance: MITOXANTRONE HYDROCHLORIDE
     Indication: Acute lymphocytic leukaemia
     Dosage: 6.6 MG, D3, D4
     Route: 042
     Dates: start: 20220107, end: 20220108
  6. ETOPOSIDE [Suspect]
     Active Substance: ETOPOSIDE
     Indication: Acute lymphocytic leukaemia
     Dosage: 124 MG, D3, D4, D5
     Route: 042
     Dates: start: 20220107, end: 20220109
  7. METHOTREXATE [Suspect]
     Active Substance: METHOTREXATE
     Indication: Acute lymphocytic leukaemia
     Dosage: 12 MG, D5
     Route: 037
     Dates: start: 20220109, end: 20220109
  8. HYDROCORTISONE [Suspect]
     Active Substance: HYDROCORTISONE
     Indication: Acute lymphocytic leukaemia
     Dosage: 15 MG, D5
     Route: 037
     Dates: start: 20220109, end: 20220109

REACTIONS (3)
  - Pancreatitis [Recovered/Resolved]
  - Pseudomonas infection [Recovered/Resolved]
  - Oral herpes [Recovered/Resolved]

NARRATIVE: CASE EVENT DATE: 20220104
